FAERS Safety Report 23216097 (Version 2)
Quarter: 2024Q1

REPORT INFORMATION
  Report Type: Spontaneous
  Country: CN (occurrence: None)
  Receive Date: 20231122
  Receipt Date: 20240326
  Transmission Date: 20240410
  Serious: Yes (Death, Hospitalization, Other)
  Sender: FDA-Public Use
  Company Number: CN-Unichem Pharmaceuticals (USA) Inc-UCM202311-001435

PATIENT
  Age: 77 Year
  Sex: Male

DRUGS (2)
  1. AMIODARONE HYDROCHLORIDE [Suspect]
     Active Substance: AMIODARONE HYDROCHLORIDE
     Indication: Arrhythmia
     Route: 048
  2. LEVAMLODIPINE BESYLATE [Concomitant]
     Active Substance: LEVAMLODIPINE BESYLATE
     Indication: Hypertension
     Route: 048

REACTIONS (6)
  - Ascites [Fatal]
  - Hepatic failure [Fatal]
  - Cholecystitis acute [Unknown]
  - Hepatic fibrosis [Unknown]
  - Liver injury [Fatal]
  - Jaundice [Fatal]
